FAERS Safety Report 11685966 (Version 1)
Quarter: 2015Q4

REPORT INFORMATION
  Report Type: Report from Study
  Country: US (occurrence: US)
  Receive Date: 20151030
  Receipt Date: 20151030
  Transmission Date: 20160304
  Serious: Yes (Hospitalization)
  Sender: FDA-Public Use
  Company Number: US-BIOGENIDEC-2015BI145144

PATIENT
  Age: 46 Year
  Sex: Female

DRUGS (7)
  1. TECFIDERA [Suspect]
     Active Substance: DIMETHYL FUMARATE
     Indication: MULTIPLE SCLEROSIS
     Route: 048
     Dates: start: 201310
  2. DANTRUIM [Concomitant]
  3. AMPYRA [Concomitant]
     Active Substance: DALFAMPRIDINE
  4. ULTRAM ER [Concomitant]
     Active Substance: TRAMADOL HYDROCHLORIDE
  5. TECFIDERA [Suspect]
     Active Substance: DIMETHYL FUMARATE
     Indication: MULTIPLE SCLEROSIS
     Route: 048
     Dates: start: 201310
  6. DETROL LA [Concomitant]
     Active Substance: TOLTERODINE TARTRATE
  7. ALLEGRA [Concomitant]
     Active Substance: FEXOFENADINE HYDROCHLORIDE

REACTIONS (1)
  - Bladder operation [Unknown]
